FAERS Safety Report 23146535 (Version 1)
Quarter: 2023Q4

REPORT INFORMATION
  Report Type: Spontaneous
  Country: RU (occurrence: RU)
  Receive Date: 20231105
  Receipt Date: 20231105
  Transmission Date: 20240110
  Serious: Yes (Hospitalization)
  Sender: FDA-Public Use
  Company Number: RU-drreddys-LIT/RUS/23/0182131

PATIENT
  Age: 36 Year
  Sex: Male

DRUGS (6)
  1. OMEPRAZOLE [Suspect]
     Active Substance: OMEPRAZOLE
     Indication: Product used for unknown indication
  2. PREDNISOLONE [Suspect]
     Active Substance: PREDNISOLONE
     Indication: Product used for unknown indication
     Route: 042
  3. DEXAMETHASONE [Suspect]
     Active Substance: DEXAMETHASONE
     Indication: Product used for unknown indication
     Route: 042
  4. CHLOROPYRAMINE [Suspect]
     Active Substance: CHLOROPYRAMINE
     Indication: Product used for unknown indication
     Route: 030
  5. POLYSORBATE 80 [Suspect]
     Active Substance: POLYSORBATE 80
     Indication: Product used for unknown indication
  6. LORATADINE [Suspect]
     Active Substance: LORATADINE
     Indication: Product used for unknown indication

REACTIONS (3)
  - Dyspnoea [Unknown]
  - Disease recurrence [Unknown]
  - Rash maculo-papular [Unknown]
